FAERS Safety Report 6573537-7 (Version None)
Quarter: 2010Q1

REPORT INFORMATION
  Report Type: 
  Country: None (occurrence: None)
  Receive Date: 20100204
  Receipt Date: 20100204
  Transmission Date: 20100710
  Serious: Yes (Hospitalization)
  Sender: FDA-Public Use
  Company Number: None

PATIENT
  Age: 60 Year
  Sex: Male
  Weight: 104.6 kg

DRUGS (2)
  1. NAFCILLIN [Suspect]
     Indication: ENDOCARDITIS STAPHYLOCOCCAL
     Dosage: 12 GM EVERY DAY IV
     Route: 042
     Dates: start: 20100121, end: 20100201
  2. RIFAMPIN [Suspect]
     Indication: ENDOCARDITIS STAPHYLOCOCCAL
     Dosage: 300 MG BID PO
     Route: 048
     Dates: start: 20100121, end: 20100201

REACTIONS (3)
  - RENAL FAILURE ACUTE [None]
  - RENAL INJURY [None]
  - TUBULOINTERSTITIAL NEPHRITIS [None]
